FAERS Safety Report 5736927-8 (Version None)
Quarter: 2008Q2

REPORT INFORMATION
  Report Type: 
  Country: None (occurrence: None)
  Receive Date: 20080509
  Receipt Date: 20080428
  Transmission Date: 20081010
  Serious: Yes (Hospitalization)
  Sender: FDA-Public Use
  Company Number: GXKR2008FR04084

PATIENT
  Age: 75 Year
  Sex: Male

DRUGS (2)
  1. METFORMIN HCL [Suspect]
     Indication: DIABETES MELLITUS
     Dosage: 850 MG, BID
  2. FLUDARABINE(FLUDARABINE) UNKNOWN [Suspect]
     Indication: CHRONIC LYMPHOCYTIC LEUKAEMIA
     Dosage: INTRAVENOUS; ORAL
     Route: 042
     Dates: start: 20070101

REACTIONS (2)
  - AUTOIMMUNE NEUTROPENIA [None]
  - DRUG INTERACTION [None]
